FAERS Safety Report 24189017 (Version 1)
Quarter: 2024Q3

REPORT INFORMATION
  Report Type: Spontaneous
  Country: US (occurrence: US)
  Receive Date: 20240808
  Receipt Date: 20240808
  Transmission Date: 20241017
  Serious: No
  Sender: OTSUKA
  Company Number: US-OTSUKA-2023_025656

PATIENT
  Age: 13 Year
  Sex: Female

DRUGS (32)
  1. ARIPIPRAZOLE [Suspect]
     Active Substance: ARIPIPRAZOLE
     Indication: Obsessive-compulsive disorder
     Dosage: UNK
     Route: 065
  2. ARIPIPRAZOLE [Suspect]
     Active Substance: ARIPIPRAZOLE
     Indication: Major depression
  3. ARIPIPRAZOLE [Suspect]
     Active Substance: ARIPIPRAZOLE
     Indication: Generalised anxiety disorder
  4. ARIPIPRAZOLE [Suspect]
     Active Substance: ARIPIPRAZOLE
     Indication: Attention deficit hyperactivity disorder
  5. DULOXETINE [Concomitant]
     Active Substance: DULOXETINE
     Indication: Obsessive-compulsive disorder
     Dosage: UNK
     Route: 065
  6. DULOXETINE [Concomitant]
     Active Substance: DULOXETINE
     Indication: Major depression
  7. DULOXETINE [Concomitant]
     Active Substance: DULOXETINE
     Indication: Generalised anxiety disorder
  8. DULOXETINE [Concomitant]
     Active Substance: DULOXETINE
     Indication: Attention deficit hyperactivity disorder
  9. CHLORPROMAZINE [Concomitant]
     Active Substance: CHLORPROMAZINE
     Indication: Obsessive-compulsive disorder
     Dosage: UNK
     Route: 065
  10. CHLORPROMAZINE [Concomitant]
     Active Substance: CHLORPROMAZINE
     Indication: Major depression
  11. CHLORPROMAZINE [Concomitant]
     Active Substance: CHLORPROMAZINE
     Indication: Generalised anxiety disorder
  12. CHLORPROMAZINE [Concomitant]
     Active Substance: CHLORPROMAZINE
     Indication: Attention deficit hyperactivity disorder
  13. CLONAZEPAM [Concomitant]
     Active Substance: CLONAZEPAM
     Indication: Obsessive-compulsive disorder
     Dosage: UNK
     Route: 065
  14. CLONAZEPAM [Concomitant]
     Active Substance: CLONAZEPAM
     Indication: Major depression
  15. CLONAZEPAM [Concomitant]
     Active Substance: CLONAZEPAM
     Indication: Generalised anxiety disorder
  16. CLONAZEPAM [Concomitant]
     Active Substance: CLONAZEPAM
     Indication: Attention deficit hyperactivity disorder
  17. FLUOXETINE [Concomitant]
     Active Substance: FLUOXETINE HYDROCHLORIDE
     Indication: Obsessive-compulsive disorder
     Dosage: UNK
     Route: 065
  18. FLUOXETINE [Concomitant]
     Active Substance: FLUOXETINE HYDROCHLORIDE
     Indication: Major depression
  19. FLUOXETINE [Concomitant]
     Active Substance: FLUOXETINE HYDROCHLORIDE
     Indication: Generalised anxiety disorder
  20. FLUOXETINE [Concomitant]
     Active Substance: FLUOXETINE HYDROCHLORIDE
     Indication: Attention deficit hyperactivity disorder
  21. MIRTAZAPINE [Concomitant]
     Active Substance: MIRTAZAPINE
     Indication: Obsessive-compulsive disorder
     Dosage: UNK
     Route: 065
  22. MIRTAZAPINE [Concomitant]
     Active Substance: MIRTAZAPINE
     Indication: Major depression
  23. MIRTAZAPINE [Concomitant]
     Active Substance: MIRTAZAPINE
     Indication: Generalised anxiety disorder
  24. MIRTAZAPINE [Concomitant]
     Active Substance: MIRTAZAPINE
     Indication: Attention deficit hyperactivity disorder
  25. KETAMINE [Concomitant]
     Active Substance: KETAMINE
     Indication: Obsessive-compulsive disorder
     Dosage: UNK
     Route: 065
  26. KETAMINE [Concomitant]
     Active Substance: KETAMINE
     Indication: Major depression
  27. KETAMINE [Concomitant]
     Active Substance: KETAMINE
     Indication: Generalised anxiety disorder
  28. KETAMINE [Concomitant]
     Active Substance: KETAMINE
     Indication: Attention deficit hyperactivity disorder
  29. SERTRALINE [Concomitant]
     Active Substance: SERTRALINE HYDROCHLORIDE
     Indication: Obsessive-compulsive disorder
     Dosage: UNK
     Route: 065
  30. SERTRALINE [Concomitant]
     Active Substance: SERTRALINE HYDROCHLORIDE
     Indication: Major depression
  31. SERTRALINE [Concomitant]
     Active Substance: SERTRALINE HYDROCHLORIDE
     Indication: Generalised anxiety disorder
  32. SERTRALINE [Concomitant]
     Active Substance: SERTRALINE HYDROCHLORIDE
     Indication: Attention deficit hyperactivity disorder

REACTIONS (1)
  - Drug ineffective for unapproved indication [Unknown]
